FAERS Safety Report 7985689 (Version 2)
Quarter: 2013Q2

REPORT INFORMATION
  Report Type: Report from Study
  Country: MX (occurrence: MX)
  Receive Date: 20110610
  Receipt Date: 20130604
  Transmission Date: 20140414
  Serious: Yes (Death, Hospitalization)
  Sender: FDA-Public Use
  Company Number: PHHY2011MX47614

PATIENT
  Age: 79 Year
  Sex: Female

DRUGS (3)
  1. DIOVAN [Suspect]
     Indication: HYPERTENSION
     Dosage: 1 DF (160MG)
     Route: 048
     Dates: start: 2003, end: 20061225
  2. OXYGEN [Concomitant]
     Indication: CHRONIC OBSTRUCTIVE PULMONARY DISEASE
  3. BRONCHODILATORS [Concomitant]
     Indication: CHRONIC OBSTRUCTIVE PULMONARY DISEASE

REACTIONS (4)
  - Pneumonia [Fatal]
  - Chronic obstructive pulmonary disease [Fatal]
  - Cardiac failure [Fatal]
  - Cerebrovascular accident [Unknown]
